FAERS Safety Report 26019691 (Version 1)
Quarter: 2025Q4

REPORT INFORMATION
  Report Type: Spontaneous
  Country: US (occurrence: None)
  Receive Date: 20251108
  Receipt Date: 20251108
  Transmission Date: 20260118
  Serious: Yes (Life-Threatening, Hospitalization)
  Sender: FDA-CTU
  Company Number: None

PATIENT
  Age: 78 Year
  Sex: Female
  Weight: 68.85 kg

DRUGS (12)
  1. AMPYRA [Suspect]
     Active Substance: DALFAMPRIDINE
     Indication: Gait disturbance
     Dosage: OTHER QUANTITY : 1 TABLET(S);?FREQUENCY : EVERY 12 HOURS;?
     Route: 048
     Dates: start: 20251020, end: 20251021
  2. AMPYRA [Suspect]
     Active Substance: DALFAMPRIDINE
     Indication: Balance disorder
  3. JARDIANCE [Concomitant]
     Active Substance: EMPAGLIFLOZIN
  4. LOSARTAN [Concomitant]
     Active Substance: LOSARTAN
  5. METOPROLOL [Concomitant]
     Active Substance: METOPROLOL
  6. atorovastaten [Concomitant]
  7. SPIRONOLACTONE [Concomitant]
     Active Substance: SPIRONOLACTONE
  8. BACLOFEN [Concomitant]
     Active Substance: BACLOFEN
  9. VITAMINS [Concomitant]
     Active Substance: VITAMINS
  10. VITAMIN D3 [Concomitant]
     Active Substance: CHOLECALCIFEROL
  11. VITAMIN B12 [Concomitant]
     Active Substance: CYANOCOBALAMIN
  12. MAGNESIUM [Concomitant]
     Active Substance: MAGNESIUM

REACTIONS (9)
  - Poor quality sleep [None]
  - Muscular weakness [None]
  - Tremor [None]
  - Gait disturbance [None]
  - Dysstasia [None]
  - Dyspnoea [None]
  - Speech disorder [None]
  - Seizure [None]
  - Adverse drug reaction [None]

NARRATIVE: CASE EVENT DATE: 20251020
